FAERS Safety Report 7582844-0 (Version None)
Quarter: 2011Q2

REPORT INFORMATION
  Report Type: 
  Country: None (occurrence: None)
  Receive Date: 20110627
  Receipt Date: 20110627
  Transmission Date: 20111010
  Serious: Yes (Other)
  Sender: FDA-Public Use
  Company Number: None

PATIENT
  Age: 52 Year
  Sex: Male
  Weight: 108.8633 kg

DRUGS (1)
  1. PROBENECID [Suspect]
     Indication: GOUT
     Dosage: 1 2X PO
     Route: 048
     Dates: start: 20110511, end: 20110607

REACTIONS (4)
  - SINUS CONGESTION [None]
  - INSOMNIA [None]
  - HYPOPNOEA [None]
  - BLOOD URINE [None]
